FAERS Safety Report 9386819 (Version 3)
Quarter: 2013Q3

REPORT INFORMATION
  Report Type: Spontaneous
  Country: US (occurrence: US)
  Receive Date: 20130708
  Receipt Date: 20130820
  Transmission Date: 20140515
  Serious: No
  Sender: FDA-Public Use
  Company Number: US-PFIZER INC-2013197747

PATIENT
  Age: 62 Year
  Sex: Female
  Weight: 95.24 kg

DRUGS (11)
  1. PRISTIQ [Suspect]
     Indication: DEPRESSION
     Dosage: 50 MG, DAILY
     Dates: start: 1995
  2. PRISTIQ [Suspect]
     Dosage: 100 MG, DAILY
     Dates: end: 2012
  3. PRISTIQ [Suspect]
     Dosage: UNK
     Dates: end: 2013
  4. EFFEXOR [Suspect]
     Indication: DEPRESSION
     Dosage: UNK, SINGLE
     Dates: start: 2012
  5. VENLAFAXINE HCL [Suspect]
     Indication: DEPRESSION
     Dosage: UNK, SINGLE
     Dates: start: 2012
  6. HYDROCHLOROTHIAZIDE [Suspect]
     Indication: HYPERTENSION
     Dosage: 25 MG, DAILY
     Dates: end: 2013
  7. METFORMIN [Concomitant]
     Dosage: 500 MG, DAILY
  8. WELLBUTRIN [Concomitant]
     Indication: DEPRESSION
     Dosage: 100 MG, DAILY
  9. OMEPRAZOLE [Concomitant]
     Indication: GASTROOESOPHAGEAL REFLUX DISEASE
     Dosage: 65 MG, UNK
  10. SIMVASTATIN [Concomitant]
     Dosage: 10 MG, DAILY
  11. SYNTHROID [Concomitant]
     Indication: HYPOTHYROIDISM
     Dosage: 100 UG, 1X/DAY

REACTIONS (9)
  - Anxiety [Recovered/Resolved]
  - Feeling abnormal [Unknown]
  - Anger [Unknown]
  - Screaming [Unknown]
  - Dysphonia [Unknown]
  - Thinking abnormal [Unknown]
  - Blood pressure increased [Recovered/Resolved]
  - Hot flush [Recovered/Resolved]
  - Confusional state [Recovered/Resolved]
